FAERS Safety Report 8090728-7 (Version None)
Quarter: 2012Q1

REPORT INFORMATION
  Report Type: 
  Country: None (occurrence: None)
  Receive Date: 20120131
  Receipt Date: 20120125
  Transmission Date: 20120608
  Serious: Yes (Hospitalization)
  Sender: FDA-Public Use
  Company Number: US-AMGEN-USASP2012005226

PATIENT
  Age: 48 Year
  Sex: Female

DRUGS (2)
  1. ENBREL [Suspect]
     Indication: PSORIATIC ARTHROPATHY
     Dosage: 50 MG, QWK
     Dates: start: 20060125, end: 20110901
  2. ENBREL [Suspect]
     Indication: PSORIASIS

REACTIONS (6)
  - PSORIASIS [None]
  - RESTLESS LEGS SYNDROME [None]
  - DYSPHEMIA [None]
  - PSORIATIC ARTHROPATHY [None]
  - HIP ARTHROPLASTY [None]
  - FEELING ABNORMAL [None]
